FAERS Safety Report 21312569 (Version 1)
Quarter: 2022Q3

REPORT INFORMATION
  Report Type: Spontaneous
  Country: US (occurrence: None)
  Receive Date: 20220909
  Receipt Date: 20220909
  Transmission Date: 20221027
  Serious: No
  Sender: FDA-Public Use
  Company Number: US-ARIS GLOBAL-202207-1228

PATIENT
  Sex: Female

DRUGS (12)
  1. OXERVATE [Suspect]
     Active Substance: CENEGERMIN-BKBJ
     Indication: Neurotrophic keratopathy
     Route: 047
     Dates: start: 20220608
  2. OXERVATE [Suspect]
     Active Substance: CENEGERMIN-BKBJ
     Indication: Hypoaesthesia eye
  3. OXERVATE [Suspect]
     Active Substance: CENEGERMIN-BKBJ
     Indication: Ulcerative keratitis
  4. POTASSIUM [Concomitant]
     Active Substance: POTASSIUM
     Dosage: 600(99) MG
  5. LORAZEPAM [Concomitant]
     Active Substance: LORAZEPAM
  6. MELATONIN [Concomitant]
     Active Substance: MELATONIN
  7. CORTEF [Concomitant]
     Active Substance: HYDROCORTISONE
  8. CYANOCOBALAMIN [Concomitant]
     Active Substance: CYANOCOBALAMIN
  9. ASPIRIN [Concomitant]
     Active Substance: ASPIRIN
  10. WELLBUTRIN XL [Concomitant]
     Active Substance: BUPROPION HYDROCHLORIDE
     Dosage: EXTENDED RELEASE FOR 24 HOURS
  11. ACYCLOVIR [Concomitant]
     Active Substance: ACYCLOVIR
  12. ARTIFICIAL TEARS [Concomitant]
     Active Substance: GLYCERIN\HYPROMELLOSES\POLYETHYLENE GLYCOL 400
     Dosage: 0.1%-0.3%

REACTIONS (4)
  - Eye pain [Unknown]
  - Vision blurred [Unknown]
  - Eye irritation [Unknown]
  - Product dose omission issue [Unknown]
